FAERS Safety Report 25205624 (Version 3)
Quarter: 2025Q3

REPORT INFORMATION
  Report Type: Report from Study
  Country: US (occurrence: US)
  Receive Date: 20250417
  Receipt Date: 20250902
  Transmission Date: 20251021
  Serious: Yes (Other)
  Sender: DECIPHERA PHARMACEUTICALS
  Company Number: US-DECIPHERA PHARMACEUTICALS LLC-2025US000334

PATIENT
  Age: 61 Year
  Sex: Male

DRUGS (2)
  1. QINLOCK [Suspect]
     Active Substance: RIPRETINIB
     Indication: Small intestine carcinoma
     Dosage: 150 MILLIGRAM, QD
     Route: 048
     Dates: start: 20241203
  2. QINLOCK [Suspect]
     Active Substance: RIPRETINIB
     Dosage: 150 MILLIGRAM, QD
     Route: 048
     Dates: start: 20241203

REACTIONS (7)
  - Hip arthroplasty [Unknown]
  - Sciatica [Unknown]
  - Asthenia [Unknown]
  - Alopecia [Unknown]
  - Insomnia [Unknown]
  - Hypertension [Unknown]
  - Product use in unapproved indication [Unknown]

NARRATIVE: CASE EVENT DATE: 20241203
